FAERS Safety Report 25952594 (Version 3)
Quarter: 2025Q4

REPORT INFORMATION
  Report Type: Report from Study
  Country: JP (occurrence: JP)
  Receive Date: 20251023
  Receipt Date: 20251128
  Transmission Date: 20260117
  Serious: Yes (Death, Other)
  Sender: ROCHE
  Company Number: JP-ROCHE-10000416029

PATIENT

DRUGS (5)
  1. POLATUZUMAB VEDOTIN [Suspect]
     Active Substance: POLATUZUMAB VEDOTIN
     Indication: Diffuse large B-cell lymphoma
     Route: 065
  2. RITUXIMAB [Suspect]
     Active Substance: RITUXIMAB
     Indication: Diffuse large B-cell lymphoma
     Route: 042
  3. CYCLOPHOSPHAMIDE [Suspect]
     Active Substance: CYCLOPHOSPHAMIDE
     Indication: Diffuse large B-cell lymphoma
     Route: 065
  4. DOXORUBICIN [Suspect]
     Active Substance: DOXORUBICIN
     Indication: Diffuse large B-cell lymphoma
     Route: 065
  5. PREDNISONE [Suspect]
     Active Substance: PREDNISONE
     Indication: Diffuse large B-cell lymphoma
     Route: 065

REACTIONS (14)
  - Sepsis [Fatal]
  - Febrile neutropenia [Unknown]
  - Pneumonia [Fatal]
  - Bacteraemia [Unknown]
  - Transaminases increased [Unknown]
  - Anaemia [Unknown]
  - Thrombocytopenia [Unknown]
  - COVID-19 [Fatal]
  - Cerebrovascular accident [Fatal]
  - Decreased appetite [Unknown]
  - Pyrexia [Unknown]
  - Gastrointestinal perforation [Unknown]
  - Varicella zoster virus infection [Unknown]
  - Fatigue [Unknown]
